FAERS Safety Report 13266866 (Version 2)
Quarter: 2017Q3

REPORT INFORMATION
  Report Type: Report from Study
  Country: US (occurrence: US)
  Receive Date: 20170224
  Receipt Date: 20170725
  Transmission Date: 20171127
  Serious: Yes (Congenital Anomaly, Other)
  Sender: FDA-Public Use
  Company Number: PHEH2017US004956

PATIENT
  Sex: Male

DRUGS (6)
  1. IBUPROFEN. [Concomitant]
     Active Substance: IBUPROFEN
     Indication: FOETAL EXPOSURE DURING PREGNANCY
     Dosage: MATERNAL DOSE: 600-1000 MG, PRN, PRIOR TO PREGNANCY, 1ST AND 2ND TRIMESTER
     Route: 064
  2. MULTI-VIT [Concomitant]
     Active Substance: VITAMINS
     Indication: FOETAL EXPOSURE DURING PREGNANCY
     Dosage: MATERNAL DOSE: 2 DF (PILLS), QD, DURING 2ND AND 3RD TRIMESTER
     Route: 064
  3. TYLENOL [Concomitant]
     Active Substance: ACETAMINOPHEN
     Indication: FOETAL EXPOSURE DURING PREGNANCY
     Dosage: MATERNAL DOSE: 750 MG, TID, DURING FIRST TRIMESTER
     Route: 064
  4. GILENYA [Suspect]
     Active Substance: FINGOLIMOD HYDROCHLORIDE
     Indication: FOETAL EXPOSURE DURING PREGNANCY
     Dosage: MATERNAL DOSE: 0.5 MG, QD
     Route: 064
  5. VENLAFAXINE HYDROCHLORIDE. [Concomitant]
     Active Substance: VENLAFAXINE HYDROCHLORIDE
     Indication: FOETAL EXPOSURE DURING PREGNANCY
     Dosage: MATERNAL DOSE: 37.5 MG, QD
     Route: 064
  6. GABAPENTIN. [Concomitant]
     Active Substance: GABAPENTIN
     Indication: FOETAL EXPOSURE DURING PREGNANCY
     Dosage: MATERNAL DOSE: DURING THE FIRST TRIMESTER
     Route: 064

REACTIONS (4)
  - Foetal exposure during pregnancy [Unknown]
  - Cardiac septal defect [Unknown]
  - Cardiac murmur [Recovering/Resolving]
  - Polydactyly [Unknown]
